FAERS Safety Report 9504756 (Version 1)
Quarter: 2013Q3

REPORT INFORMATION
  Report Type: Spontaneous
  Country: IT (occurrence: IT)
  Receive Date: 20130906
  Receipt Date: 20130906
  Transmission Date: 20140515
  Serious: Yes (Hospitalization, Other)
  Sender: FDA-Public Use
  Company Number: PHHY2013IT095522

PATIENT
  Sex: 0

DRUGS (5)
  1. DIGOXIN [Suspect]
     Dosage: UNK UKN, UNK
  2. FUROSEMIDE [Interacting]
     Dosage: UNK UKN, UNK
  3. SERTRALINE [Interacting]
     Dosage: UNK UKN, UNK
  4. TRAZODONE [Interacting]
     Dosage: UNK UKN, UNK
  5. RAMIPRIL [Interacting]
     Dosage: UNK UKN, UNK

REACTIONS (2)
  - Arrhythmia [Unknown]
  - Drug interaction [Unknown]
